FAERS Safety Report 13151880 (Version 1)
Quarter: 2017Q1

REPORT INFORMATION
  Report Type: Spontaneous
  Country: US (occurrence: US)
  Receive Date: 20170125
  Receipt Date: 20170125
  Transmission Date: 20170428
  Serious: No
  Sender: FDA-Public Use
  Company Number: US-ELI_LILLY_AND_COMPANY-US201701008549

PATIENT
  Sex: Male

DRUGS (3)
  1. HUMULIN R [Suspect]
     Active Substance: INSULIN HUMAN
     Indication: TYPE 2 DIABETES MELLITUS
     Dosage: 17 U, TID
     Route: 065
     Dates: start: 201201
  2. VICTOZA [Concomitant]
     Active Substance: LIRAGLUTIDE
  3. HUMULIN R [Suspect]
     Active Substance: INSULIN HUMAN
     Dosage: 17 U, TID
     Route: 065
     Dates: start: 20170118

REACTIONS (4)
  - Nervousness [Not Recovered/Not Resolved]
  - Blood glucose increased [Not Recovered/Not Resolved]
  - Drug ineffective [Not Recovered/Not Resolved]
  - Panic reaction [Unknown]

NARRATIVE: CASE EVENT DATE: 20170119
